FAERS Safety Report 5756017-8 (Version None)
Quarter: 2008Q2

REPORT INFORMATION
  Report Type: 
  Country: None (occurrence: None)
  Receive Date: 20080602
  Receipt Date: 20080521
  Transmission Date: 20081010
  Serious: Yes (Death, Life-Threatening, Hospitalization, Disabling, Other)
  Sender: FDA-Public Use
  Company Number: PHHO2006FR09341

PATIENT
  Sex: Male
  Weight: 78 kg

DRUGS (11)
  1. RAD 666 RAD+TAB+PTR [Suspect]
     Indication: RENAL TRANSPLANT
     Dosage: 0.75 MG, BID
     Route: 048
     Dates: start: 20060503, end: 20060621
  2. NEORAL [Suspect]
     Indication: RENAL TRANSPLANT
     Dosage: 100 MG, BID
     Route: 048
     Dates: start: 20060502, end: 20060627
  3. PREDNISONE TAB [Suspect]
     Indication: RENAL TRANSPLANT
     Dosage: 17.5 MG
     Route: 048
     Dates: start: 20060502
  4. CORTANCYL [Suspect]
     Dosage: 17.5 MG, QD
     Dates: start: 20060602, end: 20060612
  5. CORTANCYL [Suspect]
     Dosage: 20 MG, QD
     Dates: start: 20060615, end: 20060625
  6. BACTRIM [Concomitant]
  7. ROVALCYTE [Concomitant]
  8. INSULIN [Concomitant]
  9. FUROSEMIDE [Concomitant]
  10. OMEPRAZOLE [Concomitant]
  11. HEPARIN [Concomitant]

REACTIONS (7)
  - DISEASE PROGRESSION [None]
  - ENCEPHALOPATHY [None]
  - LUNG INFECTION PSEUDOMONAL [None]
  - NOSOCOMIAL INFECTION [None]
  - RENAL FAILURE [None]
  - SEPTIC SHOCK [None]
  - VENA CAVA THROMBOSIS [None]
